FAERS Safety Report 21801452 (Version 7)
Quarter: 2023Q2

REPORT INFORMATION
  Report Type: Report from Study
  Country: FR (occurrence: FR)
  Receive Date: 20221230
  Receipt Date: 20230529
  Transmission Date: 20230721
  Serious: Yes (Other)
  Sender: FDA-Public Use
  Company Number: FR-SA-SAC20221214001617

PATIENT
  Age: 63 Year
  Sex: Male
  Weight: 84 kg

DRUGS (29)
  1. DEXAMETHASONE [Suspect]
     Active Substance: DEXAMETHASONE
     Indication: Plasma cell myeloma refractory
     Dosage: 40 MG, QW
     Route: 065
     Dates: start: 20220915, end: 20221012
  2. DEXAMETHASONE [Suspect]
     Active Substance: DEXAMETHASONE
     Dosage: 10 MG, QW
     Route: 065
     Dates: start: 20221013, end: 20221103
  3. DEXAMETHASONE [Suspect]
     Active Substance: DEXAMETHASONE
     Dosage: 10 MG, QW
     Route: 065
     Dates: start: 20221219, end: 20230109
  4. DEXAMETHASONE [Suspect]
     Active Substance: DEXAMETHASONE
     Dosage: 10 MG, QW
     Route: 065
     Dates: start: 20230223, end: 20230316
  5. DEXAMETHASONE [Suspect]
     Active Substance: DEXAMETHASONE
     Dosage: 10 MG, QW
     Route: 065
     Dates: start: 20230123, end: 20230213
  6. DEXAMETHASONE [Suspect]
     Active Substance: DEXAMETHASONE
     Dosage: 40 MG, QW
     Route: 065
     Dates: start: 20220915, end: 20220926
  7. DEXAMETHASONE [Suspect]
     Active Substance: DEXAMETHASONE
     Dosage: 10 MG, QW
     Route: 065
     Dates: start: 20221110, end: 20221201
  8. CARFILZOMIB [Suspect]
     Active Substance: CARFILZOMIB
     Indication: Plasma cell myeloma refractory
     Route: 065
  9. POMALIDOMIDE [Suspect]
     Active Substance: POMALIDOMIDE
     Indication: Plasma cell myeloma refractory
     Route: 065
     Dates: start: 20220915, end: 20220925
  10. POMALIDOMIDE [Suspect]
     Active Substance: POMALIDOMIDE
     Route: 065
     Dates: start: 20221013, end: 20221102
  11. POMALIDOMIDE [Suspect]
     Active Substance: POMALIDOMIDE
     Route: 065
     Dates: start: 20221224, end: 20230113
  12. POMALIDOMIDE [Suspect]
     Active Substance: POMALIDOMIDE
     Route: 065
     Dates: start: 20221011, end: 20221130
  13. POMALIDOMIDE [Suspect]
     Active Substance: POMALIDOMIDE
     Route: 065
     Dates: start: 20230123, end: 20230212
  14. POMALIDOMIDE [Suspect]
     Active Substance: POMALIDOMIDE
     Route: 065
     Dates: start: 20221110, end: 20221130
  15. ISATUXIMAB [Suspect]
     Active Substance: ISATUXIMAB
     Indication: Plasma cell myeloma refractory
     Dosage: 840 MG, QW
     Route: 065
     Dates: start: 20220915, end: 20220922
  16. ISATUXIMAB [Suspect]
     Active Substance: ISATUXIMAB
     Dosage: 840 MG, BIW
     Route: 065
     Dates: start: 20221013, end: 20221027
  17. ISATUXIMAB [Suspect]
     Active Substance: ISATUXIMAB
     Dosage: 840 MG, BIW
     Route: 065
     Dates: start: 20221219, end: 20230103
  18. ISATUXIMAB [Suspect]
     Active Substance: ISATUXIMAB
     Dosage: 840 MG, BIW
     Route: 065
     Dates: start: 20230123, end: 20230209
  19. ISATUXIMAB [Suspect]
     Active Substance: ISATUXIMAB
     Dosage: 840 MG, QW
     Route: 065
     Dates: start: 20221110, end: 20221124
  20. ISATUXIMAB [Suspect]
     Active Substance: ISATUXIMAB
     Dosage: 840 MG, QW
     Route: 065
     Dates: start: 20230223, end: 20230309
  21. ATOVAQUONE [Concomitant]
     Active Substance: ATOVAQUONE
     Indication: Infection prophylaxis
     Dates: start: 20220915
  22. TRAMADOL [Concomitant]
     Active Substance: TRAMADOL
     Indication: Bone pain
     Dates: start: 20220915
  23. PRIMPERAN [Concomitant]
     Active Substance: METOCLOPRAMIDE HYDROCHLORIDE
     Indication: Nausea
     Dates: start: 20220915
  24. VALACYCLOVIR HYDROCHLORIDE [Concomitant]
     Active Substance: VALACYCLOVIR HYDROCHLORIDE
     Indication: Infection prophylaxis
     Dates: start: 20220915
  25. ESOMEPRAZOLE MAGNESIUM [Concomitant]
     Active Substance: ESOMEPRAZOLE MAGNESIUM
     Indication: Abdominal pain upper
     Dates: start: 20220915
  26. KARDEGIC [Concomitant]
     Active Substance: ASPIRIN DL-LYSINE
     Indication: Thrombosis prophylaxis
     Dates: start: 20220915
  27. POLARAMINE [Concomitant]
     Active Substance: DEXCHLORPHENIRAMINE MALEATE
     Indication: Prophylaxis
     Dates: start: 20220915
  28. ACETAMINOPHEN [Concomitant]
     Active Substance: ACETAMINOPHEN
     Indication: Prophylaxis
     Dates: start: 20220915
  29. RANITIDINE [Concomitant]
     Active Substance: RANITIDINE
     Indication: Prophylaxis
     Dates: start: 20220915

REACTIONS (24)
  - Multisystem inflammatory syndrome [Recovered/Resolved]
  - Neutropenia [Recovered/Resolved]
  - Neutropenia [Recovered/Resolved]
  - Neutropenia [Recovered/Resolved]
  - Neutropenia [Recovered/Resolved]
  - Ear pain [Recovered/Resolved]
  - Hypotension [Recovered/Resolved]
  - Sciatica [Recovered/Resolved]
  - Keratitis [Recovered/Resolved]
  - Vision blurred [Recovered/Resolved]
  - Abdominal pain [Recovered/Resolved]
  - Dry eye [Recovered/Resolved]
  - Anaemia [Recovered/Resolved]
  - Cough [Recovered/Resolved]
  - Dyspnoea [Recovered/Resolved]
  - Lung disorder [Recovered/Resolved]
  - Rhinitis [Recovered/Resolved]
  - Rhinitis [Recovered/Resolved]
  - Constipation [Recovered/Resolved]
  - Sinusitis [Recovered/Resolved]
  - Rash [Recovered/Resolved]
  - Bronchitis [Recovered/Resolved]
  - Back pain [Not Recovered/Not Resolved]
  - Bronchitis [Recovered/Resolved]

NARRATIVE: CASE EVENT DATE: 20220915
